FAERS Safety Report 7598057-2 (Version None)
Quarter: 2011Q3

REPORT INFORMATION
  Report Type: 
  Country: None (occurrence: None)
  Receive Date: 20110708
  Receipt Date: 20110627
  Transmission Date: 20111222
  Serious: Yes (Hospitalization)
  Sender: FDA-Public Use
  Company Number: US-UCBSA-035323

PATIENT
  Sex: Female
  Weight: 63.8 kg

DRUGS (4)
  1. MULTI-VITAMIN [Concomitant]
     Dosage: 1 TABLET ONCE DAILY
     Route: 048
  2. CIMZIA [Suspect]
     Indication: CROHN'S DISEASE
     Route: 058
     Dates: start: 20110104
  3. METHOTREXATE [Concomitant]
     Indication: CROHN'S DISEASE
     Dosage: UNKNOWN DOSE
     Dates: start: 20100326
  4. QUETIAPINE [Concomitant]
     Route: 048

REACTIONS (3)
  - INFECTION [None]
  - VULVOVAGINAL PAIN [None]
  - ABDOMINAL PAIN [None]
